FAERS Safety Report 12242061 (Version 1)
Quarter: 2016Q2

REPORT INFORMATION
  Report Type: Spontaneous
  Country: IN (occurrence: IN)
  Receive Date: 20160406
  Receipt Date: 20160406
  Transmission Date: 20160815
  Serious: Yes (Hospitalization, Other)
  Sender: FDA-Public Use
  Company Number: IN-ROCHE-1737925

PATIENT
  Age: 69 Year
  Sex: Male

DRUGS (1)
  1. ACCENTRIX [Suspect]
     Active Substance: RANIBIZUMAB
     Indication: CHOROIDAL NEOVASCULARISATION
     Route: 050
     Dates: start: 20160317, end: 20160317

REACTIONS (4)
  - Endophthalmitis [Not Recovered/Not Resolved]
  - Cataract [Not Recovered/Not Resolved]
  - Polyp [Not Recovered/Not Resolved]
  - Blindness unilateral [Not Recovered/Not Resolved]

NARRATIVE: CASE EVENT DATE: 20160319
